FAERS Safety Report 9262387 (Version 1)
Quarter: 2013Q2

REPORT INFORMATION
  Report Type: Spontaneous
  Country: US (occurrence: None)
  Receive Date: 20130425
  Receipt Date: 20130425
  Transmission Date: 20140414
  Serious: Yes (Hospitalization)
  Sender: FDA-Public Use
  Company Number: None

PATIENT
  Age: 56 Year
  Sex: Male
  Weight: 90 kg

DRUGS (4)
  1. METHOTREXATE [Suspect]
  2. PROCARBAZINE [Suspect]
  3. RITUXIMAB [Suspect]
  4. VINCRISTINE SULFATE [Suspect]

REACTIONS (2)
  - Urinary tract infection [None]
  - Device related infection [None]
